FAERS Safety Report 5727373-1 (Version None)
Quarter: 2008Q2

REPORT INFORMATION
  Report Type: 
  Country: None (occurrence: None)
  Receive Date: 20080405
  Receipt Date: 20080405
  Transmission Date: 20081010
  Serious: Yes (Life-Threatening, Hospitalization)
  Sender: FDA-Public Use
  Company Number: None

PATIENT
  Age: 84 Year
  Sex: Male
  Weight: 40.8237 kg

DRUGS (1)
  1. HEPARIN [Suspect]
     Dates: start: 20080317, end: 20080330

REACTIONS (3)
  - ASTHENIA [None]
  - DYSPHAGIA [None]
  - PNEUMONIA ASPIRATION [None]
